FAERS Safety Report 23938466 (Version 1)
Quarter: 2024Q2

REPORT INFORMATION
  Report Type: Spontaneous
  Country: BR (occurrence: BR)
  Receive Date: 20240604
  Receipt Date: 20240604
  Transmission Date: 20240716
  Serious: Yes (Other)
  Sender: FDA-Public Use
  Company Number: BR-PFIZER INC-PV202400073322

PATIENT
  Age: 23 Year
  Sex: Female

DRUGS (2)
  1. CIBINQO [Suspect]
     Active Substance: ABROCITINIB
     Dosage: 200 MG, 1X/DAY
     Dates: start: 20240418
  2. CIBINQO [Suspect]
     Active Substance: ABROCITINIB
     Dosage: 200 MG, CYCLIC (EVERY OTHER DAY)
     Dates: start: 20240516

REACTIONS (3)
  - Neutropenia [Unknown]
  - Leukopenia [Unknown]
  - Off label use [Unknown]
